FAERS Safety Report 9621277 (Version 2)
Quarter: 2013Q4

REPORT INFORMATION
  Report Type: Spontaneous
  Country: IT (occurrence: IT)
  Receive Date: 20131015
  Receipt Date: 20131015
  Transmission Date: 20140711
  Serious: Yes (Hospitalization, Other)
  Sender: FDA-Public Use
  Company Number: IT-PFIZER INC-2013236526

PATIENT
  Age: 55 Year
  Sex: Male
  Weight: 66 kg

DRUGS (7)
  1. ARACYTIN [Suspect]
     Indication: NON-HODGKIN^S LYMPHOMA
     Dosage: 6000 MG/M2, DAILY
     Route: 042
     Dates: start: 20121206
  2. ENDOXAN-BAXTER [Concomitant]
     Indication: NON-HODGKIN^S LYMPHOMA
     Dosage: 300 MG/M2, UNK
     Route: 042
     Dates: start: 20121113, end: 20121115
  3. ETOPOSIDE-TEVA [Concomitant]
     Indication: NON-HODGKIN^S LYMPHOMA
     Dosage: 100 MG/M2, UNK
     Dates: start: 20121116, end: 20121117
  4. MABTHERA [Concomitant]
     Indication: NON-HODGKIN^S LYMPHOMA
     Dosage: 375 MG/M2, UNK
     Route: 042
     Dates: start: 20121126, end: 20121212
  5. METOTRESSATO ^TEVA^ [Concomitant]
     Indication: NON-HODGKIN^S LYMPHOMA
     Dosage: 1 G/M2
     Route: 042
     Dates: start: 20121205, end: 20121205
  6. VINCRISTINA ^TEVA^ [Concomitant]
     Indication: NON-HODGKIN^S LYMPHOMA
     Dosage: 2 MG, UNK
     Route: 042
     Dates: start: 20121116, end: 20121123
  7. DEXAMETHASONE PHOSPHATE ^HOSPIRA^ [Concomitant]
     Dosage: 40 MG, UNK
     Route: 042
     Dates: start: 20121113, end: 20121126

REACTIONS (2)
  - Septic embolus [Recovered/Resolved]
  - Serratia sepsis [Recovered/Resolved]
